FAERS Safety Report 13272471 (Version 2)
Quarter: 2017Q2

REPORT INFORMATION
  Report Type: Spontaneous
  Country: KR (occurrence: KR)
  Receive Date: 20170227
  Receipt Date: 20170629
  Transmission Date: 20170830
  Serious: Yes (Hospitalization)
  Sender: FDA-Public Use
  Company Number: KR-LANNETT COMPANY, INC.-KR-2017LAN000589

PATIENT
  Age: 65 Year
  Sex: Male
  Weight: 51.3 kg

DRUGS (4)
  1. PYRAZINAMIDE. [Suspect]
     Active Substance: PYRAZINAMIDE
     Indication: TUBERCULOSIS
     Dosage: UNK
  2. RIFAMPIN. [Suspect]
     Active Substance: RIFAMPIN
     Indication: TUBERCULOSIS
     Dosage: UNK
  3. ETHAMBUTOL [Suspect]
     Active Substance: ETHAMBUTOL HYDROCHLORIDE
     Indication: TUBERCULOSIS
     Dosage: UNK
  4. ISONIAZID. [Suspect]
     Active Substance: ISONIAZID
     Indication: TUBERCULOSIS
     Dosage: UNK

REACTIONS (8)
  - Hypoglycaemia [Recovered/Resolved]
  - Blood insulin increased [Unknown]
  - Blood glucose decreased [Unknown]
  - Dysarthria [Unknown]
  - Heart rate increased [Unknown]
  - Hyperinsulinaemia [Unknown]
  - Insulin autoimmune syndrome [Unknown]
  - Asthenia [Unknown]
